FAERS Safety Report 20631987 (Version 1)
Quarter: 2022Q1

REPORT INFORMATION
  Report Type: Spontaneous
  Country: JP (occurrence: JP)
  Receive Date: 20220324
  Receipt Date: 20220324
  Transmission Date: 20220424
  Serious: Yes (Hospitalization)
  Sender: FDA-Public Use
  Company Number: JP-AMGEN-JPNSP2022049591

PATIENT

DRUGS (2)
  1. OTEZLA [Suspect]
     Active Substance: APREMILAST
     Indication: Product used for unknown indication
     Dosage: UNK
     Route: 048
     Dates: start: 2019, end: 202110
  2. OTEZLA [Suspect]
     Active Substance: APREMILAST
     Dosage: UNK
     Route: 048
     Dates: start: 202111

REACTIONS (2)
  - Unevaluable event [Unknown]
  - Adverse event [Unknown]
